FAERS Safety Report 6211379-2 (Version None)
Quarter: 2009Q2

REPORT INFORMATION
  Report Type: 
  Country: None (occurrence: None)
  Receive Date: 20090602
  Receipt Date: 20090601
  Transmission Date: 20091009
  Serious: Yes (Other)
  Sender: FDA-Public Use
  Company Number: US-JNJFOC-20061005973

PATIENT
  Sex: Male

DRUGS (2)
  1. RISPERDAL [Suspect]
     Indication: SCHIZOPHRENIA
  2. ZYPREXA [Concomitant]
     Indication: SCHIZOPHRENIA
     Dosage: DOSE: 5-10 MG

REACTIONS (1)
  - TYPE 2 DIABETES MELLITUS [None]
